FAERS Safety Report 4660321-4 (Version None)
Quarter: 2005Q2

REPORT INFORMATION
  Report Type: 
  Country: None (occurrence: None)
  Receive Date: 20050427
  Receipt Date: 20050110
  Transmission Date: 20051028
  Serious: No
  Sender: FDA-Public Use
  Company Number: 211592

PATIENT
  Age: 52 Year
  Sex: Female

DRUGS (1)
  1. XOLAIR [Suspect]
     Indication: ASTHMA
     Dosage: 375 MG,
     Dates: start: 20040901, end: 20041210

REACTIONS (1)
  - ARTHRALGIA [None]
